FAERS Safety Report 9138792 (Version 1)
Quarter: 2013Q1

REPORT INFORMATION
  Report Type: Other
  Country: US (occurrence: US)
  Receive Date: 20130305
  Receipt Date: 20130305
  Transmission Date: 20140127
  Serious: Yes (Hospitalization)
  Sender: FDA-Public Use
  Company Number: US-ENDO PHARMACEUTICALS INC.-PERC20100126

PATIENT
  Age: 71 Year
  Sex: Male
  Weight: 92.71 kg

DRUGS (19)
  1. PERCOCET-5 [Suspect]
     Indication: PAIN
     Dosage: 5/325 MG
     Route: 048
     Dates: start: 20080925
  2. AMBIEN [Suspect]
     Indication: INSOMNIA
     Dosage: 10 MG
     Route: 048
     Dates: start: 20081229
  3. PREDNISONE [Suspect]
     Indication: PROSTATE CANCER
     Route: 048
     Dates: start: 20091021, end: 20100606
  4. PREDNISONE [Suspect]
     Route: 048
     Dates: start: 20100607, end: 20100613
  5. SUNITINIB MALATE [Suspect]
     Indication: PROSTATE CANCER
     Route: 048
     Dates: start: 20091021, end: 20091215
  6. SUNITINIB MALATE [Suspect]
     Route: 048
     Dates: start: 20091216, end: 20100622
  7. OXYCONTIN [Suspect]
     Indication: PAIN
     Dosage: 10 MEQ/L
     Route: 048
     Dates: start: 20100310, end: 20100713
  8. RESTORIL [Suspect]
     Indication: SEDATION
     Dosage: 15 MG
     Route: 048
     Dates: start: 20101110
  9. NUCYNTA [Suspect]
     Indication: PAIN
     Dosage: 50 MG
     Route: 048
     Dates: start: 20090915
  10. NORFLEX [Suspect]
     Indication: MUSCLE DISORDER
     Route: 048
     Dates: start: 20090915
  11. ATIVAN [Concomitant]
     Indication: ANXIETY
     Dosage: UNK
     Dates: start: 20100817
  12. ACETYLSALICYLIC ACID [Concomitant]
     Indication: ANALGESIC THERAPY
     Dosage: UNK
     Dates: start: 20040910
  13. ZOCOR [Concomitant]
     Indication: LIPIDS ABNORMAL
     Dosage: 80 MG
     Route: 048
     Dates: start: 20040901
  14. PLAVIX [Concomitant]
     Indication: CORONARY ARTERIAL STENT INSERTION
     Dosage: 75 MG
     Route: 048
     Dates: start: 20040901
  15. TEKTURNA [Concomitant]
     Indication: RENIN
     Dosage: 300 MG
     Route: 048
     Dates: start: 20080101
  16. HYDROCHLOROTHIAZIDE [Concomitant]
     Indication: PRODUCT USED FOR UNKNOWN INDICATION
     Dosage: UNK
     Route: 048
  17. HYZAAR [Concomitant]
     Indication: HYPERTENSION
     Dosage: 12.5 MG
     Dates: start: 20070101
  18. TENORMIN [Concomitant]
     Indication: PRODUCT USED FOR UNKNOWN INDICATION
     Dosage: 25 MG
     Route: 048
     Dates: start: 20070101
  19. FLEXERIL [Concomitant]
     Indication: MUSCULOSKELETAL STIFFNESS
     Dosage: UNK
     Route: 048
     Dates: start: 20100817

REACTIONS (1)
  - Confusional state [Recovered/Resolved]
